FAERS Safety Report 6117014-6 (Version None)
Quarter: 2009Q1

REPORT INFORMATION
  Report Type: 
  Country: None (occurrence: None)
  Receive Date: 20090314
  Receipt Date: 20090102
  Transmission Date: 20090719
  Serious: No
  Sender: FDA-Public Use
  Company Number: US-ABBOTT-09P-163-0495940-00

PATIENT
  Sex: Female
  Weight: 99.88 kg

DRUGS (1)
  1. HUMIRA [Suspect]
     Indication: CROHN'S DISEASE
     Dates: start: 20081229

REACTIONS (6)
  - BODY TEMPERATURE DECREASED [None]
  - FEELING COLD [None]
  - HOT FLUSH [None]
  - INJECTION SITE IRRITATION [None]
  - PRURITUS [None]
  - VOMITING [None]
